FAERS Safety Report 5011544-6 (Version None)
Quarter: 2006Q2

REPORT INFORMATION
  Report Type: 
  Country: None (occurrence: None)
  Receive Date: 20060524
  Receipt Date: 20060510
  Transmission Date: 20061013
  Serious: Yes (Hospitalization)
  Sender: FDA-Public Use
  Company Number: MEDI-0004368

PATIENT
  Age: 79 Year
  Sex: Male
  Weight: 66.2252 kg

DRUGS (9)
  1. ETHYOL [Suspect]
     Indication: RADIOTHERAPY
     Dosage: INTRAVENOUS (NOT OTHERWISE SPECIFIED)
     Route: 042
     Dates: start: 20060308, end: 20060309
  2. ETHYOL [Suspect]
     Indication: RADIOTHERAPY
     Dosage: INTRAVENOUS (NOT OTHERWISE SPECIFIED)
     Route: 042
     Dates: start: 20060314, end: 20060320
  3. RADIATION THERAPY [Concomitant]
  4. PRILOSEC [Concomitant]
  5. METOPROLOL SUCCINATE [Concomitant]
  6. LOVASTATIN [Concomitant]
  7. COMPAZINE [Concomitant]
  8. MIRACLE MOUTH WASH [Concomitant]
  9. LUPRON [Concomitant]

REACTIONS (22)
  - ASTHENIA [None]
  - DEHYDRATION [None]
  - DRUG TOXICITY [None]
  - DRY MOUTH [None]
  - DYSPHAGIA [None]
  - ERYTHEMA [None]
  - FAILURE TO THRIVE [None]
  - HAEMOPTYSIS [None]
  - HYPOTENSION [None]
  - LOSS OF CONSCIOUSNESS [None]
  - LYMPHADENOPATHY [None]
  - MALAISE [None]
  - NAUSEA [None]
  - NECK PAIN [None]
  - PHARYNGEAL HAEMORRHAGE [None]
  - PHARYNGOLARYNGEAL PAIN [None]
  - PRODUCTIVE COUGH [None]
  - PYREXIA [None]
  - RASH MACULAR [None]
  - SQUAMOUS CELL CARCINOMA [None]
  - SYNCOPE [None]
  - TREATMENT NONCOMPLIANCE [None]
